FAERS Safety Report 17828535 (Version 3)
Quarter: 2021Q1

REPORT INFORMATION
  Report Type: Spontaneous
  Country: US (occurrence: US)
  Receive Date: 20200527
  Receipt Date: 20210225
  Transmission Date: 20210419
  Serious: No
  Sender: FDA-Public Use
  Company Number: US-PFIZER INC-2020208065

PATIENT
  Age: 58 Year
  Sex: Male
  Weight: 77.11 kg

DRUGS (2)
  1. PREGABALIN. [Suspect]
     Active Substance: PREGABALIN
     Indication: DIABETIC NEUROPATHY
     Dosage: UNK
  2. INSULIN [Concomitant]
     Active Substance: INSULIN NOS
     Dosage: UNK (INSULIN SHOTS FOUR TIMES PER DAY)

REACTIONS (2)
  - Illness [Unknown]
  - Drug ineffective [Unknown]
